FAERS Safety Report 9800734 (Version 1)
Quarter: 2014Q1

REPORT INFORMATION
  Report Type: Spontaneous
  Country: US (occurrence: US)
  Receive Date: 20140107
  Receipt Date: 20140107
  Transmission Date: 20141002
  Serious: No
  Sender: FDA-Public Use
  Company Number: US-PFIZER INC-2014002864

PATIENT
  Sex: Male

DRUGS (1)
  1. NEURONTIN [Suspect]
     Indication: NERVE INJURY
     Dosage: 600 MG, 2X/DAY (TAKING 2 TABLETS OF 300MG IN MORNING AND 2 TABLETS OF 300MG)

REACTIONS (5)
  - Off label use [Unknown]
  - Dizziness [Unknown]
  - Insomnia [Unknown]
  - Irritability [Unknown]
  - Anger [Unknown]
